FAERS Safety Report 6671406-5 (Version None)
Quarter: 2010Q2

REPORT INFORMATION
  Report Type: 
  Country: None (occurrence: None)
  Receive Date: 20100407
  Receipt Date: 20100401
  Transmission Date: 20101027
  Serious: Yes (Hospitalization)
  Sender: FDA-Public Use
  Company Number: FR-SANOFI-AVENTIS-2010SA018843

PATIENT
  Age: 51 Year
  Sex: Male

DRUGS (2)
  1. ZOLPIDEM [Suspect]
     Route: 048
     Dates: start: 20091207, end: 20091217
  2. STRESAM [Suspect]
     Route: 048
     Dates: start: 20091207, end: 20091217

REACTIONS (1)
  - RASH MACULO-PAPULAR [None]
